FAERS Safety Report 6645800-2 (Version None)
Quarter: 2010Q1

REPORT INFORMATION
  Report Type: 
  Country: None (occurrence: None)
  Receive Date: 20100323
  Receipt Date: 20100315
  Transmission Date: 20100710
  Serious: Yes (Life-Threatening, Hospitalization)
  Sender: FDA-Public Use
  Company Number: DE-ELI_LILLY_AND_COMPANY-DE201003003964

PATIENT
  Sex: Male

DRUGS (7)
  1. BYETTA [Suspect]
     Dosage: 10 UG, DAILY (1/D)
     Route: 058
     Dates: start: 20090801
  2. NEBIVOLOL HCL [Concomitant]
     Dosage: 5 MG, UNKNOWN
     Route: 065
  3. DIOVAN HCT [Concomitant]
     Dosage: 160 MG, UNK
  4. FUROSEMIDE [Concomitant]
     Dosage: 40 MG, UNK
  5. LOCOL [Concomitant]
  6. NOVONORM [Concomitant]
  7. FALITHROM [Concomitant]

REACTIONS (2)
  - DYSPNOEA [None]
  - PULMONARY EMBOLISM [None]
